FAERS Safety Report 7460400-2 (Version None)
Quarter: 2011Q2

REPORT INFORMATION
  Report Type: 
  Country: None (occurrence: None)
  Receive Date: 20110505
  Receipt Date: 20110428
  Transmission Date: 20111010
  Serious: Yes (Other)
  Sender: FDA-Public Use
  Company Number: A0925702A

PATIENT
  Age: 27 Year
  Sex: Female

DRUGS (2)
  1. WELLBUTRIN [Suspect]
     Dosage: 75MG UNKNOWN
     Dates: start: 20110218, end: 20110415
  2. ALCOHOL [Suspect]

REACTIONS (2)
  - DRUG INTERACTION [None]
  - CONVULSION [None]
